FAERS Safety Report 11057191 (Version 1)
Quarter: 2015Q2

REPORT INFORMATION
  Report Type: Spontaneous
  Country: US (occurrence: None)
  Receive Date: 20150420
  Receipt Date: 20150420
  Transmission Date: 20150821
  Serious: Yes (Other)
  Sender: FDA-Public Use
  Company Number: AEGR001208

PATIENT
  Age: 42 Year
  Sex: Female
  Weight: 80.3 kg

DRUGS (1)
  1. JUXTAPID [Suspect]
     Active Substance: LOMITAPIDE MESYLATE
     Indication: TYPE IIA HYPERLIPIDAEMIA
     Route: 048
     Dates: start: 20150218, end: 20150313

REACTIONS (6)
  - Therapy cessation [None]
  - Drug dose omission [None]
  - Headache [None]
  - Diarrhoea [None]
  - Abdominal discomfort [None]
  - Defaecation urgency [None]

NARRATIVE: CASE EVENT DATE: 201502
